FAERS Safety Report 10561246 (Version 1)
Quarter: 2014Q4

REPORT INFORMATION
  Report Type: Spontaneous
  Country: DE (occurrence: DE)
  Receive Date: 20141103
  Receipt Date: 20141103
  Transmission Date: 20150529
  Serious: Yes (Other)
  Sender: FDA-Public Use
  Company Number: DE-MYLANLABS-2014M1008535

PATIENT

DRUGS (5)
  1. MIRTAZAPIN DURA 15MG FILMTABLETTEN [Suspect]
     Active Substance: MIRTAZAPINE
     Dosage: 0.5 TABLETS PER DAY (7.5 MG)
     Route: 048
  2. MIRTAZAPIN DURA 15MG FILMTABLETTEN [Suspect]
     Active Substance: MIRTAZAPINE
     Dosage: ? TABLET (3.75 MG/DAY)
  3. SEROQUEL [Concomitant]
     Active Substance: QUETIAPINE FUMARATE
     Indication: PRODUCT USED FOR UNKNOWN INDICATION
     Dosage: 150 MG, QD (1 TABLET IN THE EVENING)
     Route: 048
  4. CITALOPRAM [Concomitant]
     Active Substance: CITALOPRAM HYDROBROMIDE
     Indication: PRODUCT USED FOR UNKNOWN INDICATION
     Dosage: 1 DF, QD (10-20 MG  TABLET)
     Route: 048
  5. MIRTAZAPIN DURA 15MG FILMTABLETTEN [Suspect]
     Active Substance: MIRTAZAPINE
     Indication: PERSONALITY DISORDER
     Dosage: 15 MG, QD
     Route: 048

REACTIONS (5)
  - Weight increased [Not Recovered/Not Resolved]
  - Drug withdrawal syndrome [Recovered/Resolved]
  - Dry mouth [Not Recovered/Not Resolved]
  - Dry eye [Not Recovered/Not Resolved]
  - Oedema [None]
